FAERS Safety Report 4951595-0 (Version None)
Quarter: 2006Q1

REPORT INFORMATION
  Report Type: 
  Country: None (occurrence: None)
  Receive Date: 20060323
  Receipt Date: 20060314
  Transmission Date: 20060701
  Serious: Yes (Other)
  Sender: FDA-Public Use
  Company Number: 2006AP01234

PATIENT
  Sex: Female
  Weight: 71 kg

DRUGS (2)
  1. ATACAND [Suspect]
     Indication: ESSENTIAL HYPERTENSION
     Route: 048
     Dates: start: 20040830
  2. SPIRONOLACTONE [Suspect]
     Route: 048

REACTIONS (4)
  - AGITATION [None]
  - HYPERKALAEMIA [None]
  - INSOMNIA [None]
  - RENAL FAILURE [None]
